FAERS Safety Report 23351008 (Version 1)
Quarter: 2023Q4

REPORT INFORMATION
  Report Type: Report from Study
  Country: CO (occurrence: CO)
  Receive Date: 20231229
  Receipt Date: 20231229
  Transmission Date: 20240110
  Serious: Yes (Other)
  Sender: FDA-Public Use
  Company Number: CO-002147023-NVSC2023CO275565

PATIENT
  Sex: Female
  Weight: 57 kg

DRUGS (2)
  1. TAFINLAR [Suspect]
     Active Substance: DABRAFENIB MESYLATE
     Indication: Metastatic malignant melanoma
     Dosage: UNK, BID (BY MOUTH, ONE IN THE MORNING AND IN THE EVENING)
     Route: 048
     Dates: start: 20220201
  2. MEKINIST [Suspect]
     Active Substance: TRAMETINIB DIMETHYL SULFOXIDE
     Indication: Metastatic malignant melanoma
     Dosage: 2 MG, QD
     Route: 065
     Dates: start: 20220201

REACTIONS (3)
  - Metastases to adrenals [Unknown]
  - Metastases to bone marrow [Unknown]
  - Drug ineffective [Unknown]
